FAERS Safety Report 18582373 (Version 4)
Quarter: 2025Q3

REPORT INFORMATION
  Report Type: Spontaneous
  Country: EU (occurrence: EU)
  Receive Date: 20201205
  Receipt Date: 20250706
  Transmission Date: 20251020
  Serious: Yes (Hospitalization, Other)
  Sender: AUROBINDO
  Company Number: EU-MYLANLABS-2020M1097155

PATIENT
  Age: 2 Day
  Sex: Female
  Weight: 1.38 kg

DRUGS (3)
  1. IBUPROFEN [Suspect]
     Active Substance: IBUPROFEN
     Indication: Patent ductus arteriosus
     Route: 065
  2. DOPAMINE [Concomitant]
     Active Substance: DOPAMINE HYDROCHLORIDE
     Indication: Product used for unknown indication
     Route: 065
  3. SODIUM BICARBONATE [Concomitant]
     Active Substance: SODIUM BICARBONATE
     Indication: Product used for unknown indication
     Route: 065

REACTIONS (6)
  - Pulmonary hypertension [Recovered/Resolved]
  - Coagulation test abnormal [Recovered/Resolved]
  - Prothrombin time prolonged [Recovered/Resolved]
  - Activated partial thromboplastin time prolonged [Recovered/Resolved]
  - Newborn persistent pulmonary hypertension [Recovered/Resolved]
  - Product use issue [Unknown]
